FAERS Safety Report 6684411-X (Version None)
Quarter: 2010Q2

REPORT INFORMATION
  Report Type: 
  Country: None (occurrence: None)
  Receive Date: 20100416
  Receipt Date: 20100413
  Transmission Date: 20101027
  Serious: Yes (Hospitalization, Other)
  Sender: FDA-Public Use
  Company Number: IT-ROXANE LABORATORIES, INC.-2010-RO-00413RO

PATIENT
  Age: 45 Year
  Sex: Male

DRUGS (9)
  1. MORPHINE [Suspect]
     Indication: COMPLEX REGIONAL PAIN SYNDROME
     Dosage: 0.25 MG
     Route: 037
  2. MORPHINE [Suspect]
     Indication: PHANTOM PAIN
     Route: 058
  3. MORPHINE [Suspect]
     Dosage: 0.3 MG
     Route: 037
     Dates: end: 20050801
  4. DIAZEPAM [Suspect]
     Indication: PHANTOM PAIN
     Dosage: 5 MG
  5. SERTRALINE HCL [Suspect]
     Indication: PHANTOM PAIN
     Dosage: 50 MG
  6. GABAPENTIN [Suspect]
     Indication: PAIN
     Dosage: 600 MG
  7. GABAPENTIN [Suspect]
     Indication: PHANTOM PAIN
     Dosage: 600 MG
     Route: 048
  8. ROPIVACAINE HYDROCHLORIDE [Concomitant]
     Indication: PHANTOM PAIN
  9. ROPIVACAINE HYDROCHLORIDE [Concomitant]

REACTIONS (6)
  - DEPENDENCE ON ENABLING MACHINE OR DEVICE [None]
  - DRUG INEFFECTIVE [None]
  - INFECTION [None]
  - PAIN [None]
  - PHANTOM PAIN [None]
  - SKIN ULCER [None]
